FAERS Safety Report 25149629 (Version 1)
Quarter: 2025Q2

REPORT INFORMATION
  Report Type: Spontaneous
  Country: US (occurrence: US)
  Receive Date: 20250402
  Receipt Date: 20250402
  Transmission Date: 20250717
  Serious: Yes (Death, Other)
  Sender: GILEAD
  Company Number: US-GILEAD-2025-0709214

PATIENT
  Sex: Male

DRUGS (17)
  1. VEMLIDY [Suspect]
     Active Substance: TENOFOVIR ALAFENAMIDE FUMARATE
     Indication: Hepatic cirrhosis
     Dosage: 25 MG, QD (25 MG | TAKE 1 TABLET BY MOUTH DAILY)
     Route: 048
  2. VEMLIDY [Suspect]
     Active Substance: TENOFOVIR ALAFENAMIDE FUMARATE
     Indication: Chronic hepatitis B
  3. PLAVIX [Concomitant]
     Active Substance: CLOPIDOGREL BISULFATE
  4. INSULIN NOS [Concomitant]
     Active Substance: INSULIN NOS
  5. ERGOCALCIFEROL [Concomitant]
     Active Substance: ERGOCALCIFEROL
  6. MONTELUKAST SODIUM [Concomitant]
     Active Substance: MONTELUKAST SODIUM
  7. GABAPENTIN [Concomitant]
     Active Substance: GABAPENTIN
  8. ROSUVASTATIN CALCIUM [Concomitant]
     Active Substance: ROSUVASTATIN CALCIUM
  9. MAGNESIA [MAGNESIUM OXIDE] [Concomitant]
  10. ASPIRIN [Concomitant]
     Active Substance: ASPIRIN
  11. TAMSULOSIN HYDROCHLORIDE [Concomitant]
     Active Substance: TAMSULOSIN HYDROCHLORIDE
  12. TELMISARTAN [Concomitant]
     Active Substance: TELMISARTAN
  13. BUMETANIDE [Concomitant]
     Active Substance: BUMETANIDE
  14. FOLIC ACID [Concomitant]
     Active Substance: FOLIC ACID
  15. VITAMIN C [Concomitant]
     Active Substance: ASCORBIC ACID
  16. IRON [Concomitant]
     Active Substance: IRON
  17. EZETIMIBE [Concomitant]
     Active Substance: EZETIMIBE

REACTIONS (1)
  - Death [Fatal]
